FAERS Safety Report 14427810 (Version 5)
Quarter: 2020Q2

REPORT INFORMATION
  Report Type: Report from Study
  Country: DE (occurrence: DE)
  Receive Date: 20180123
  Receipt Date: 20200629
  Transmission Date: 20200713
  Serious: Yes (Hospitalization)
  Sender: FDA-Public Use
  Company Number: PHHY2018DE008324

PATIENT
  Age: 60 Year
  Sex: Female
  Weight: 103 kg

DRUGS (4)
  1. LEVOTHYROXINE. [Concomitant]
     Active Substance: LEVOTHYROXINE
     Indication: PRODUCT USED FOR UNKNOWN INDICATION
     Dosage: 50 OT, QD
     Route: 065
  2. FAMPYRA [Concomitant]
     Active Substance: DALFAMPRIDINE
     Indication: PRODUCT USED FOR UNKNOWN INDICATION
     Dosage: 10 MG, BID
     Route: 065
  3. GILENYA [Suspect]
     Active Substance: FINGOLIMOD HYDROCHLORIDE
     Indication: MULTIPLE SCLEROSIS
     Dosage: 0.5 MG, QD
     Route: 048
     Dates: start: 20150115
  4. SPIRIVA [Concomitant]
     Active Substance: TIOTROPIUM BROMIDE MONOHYDRATE
     Indication: PRODUCT USED FOR UNKNOWN INDICATION
     Dosage: 18 UG, QD
     Route: 065

REACTIONS (30)
  - Hypothyroidism [Unknown]
  - Cyanosis [Unknown]
  - Pneumonia [Recovered/Resolved]
  - Urinary tract infection [Recovered/Resolved]
  - Platelet count increased [Unknown]
  - Blood lactate dehydrogenase decreased [Unknown]
  - Respiratory acidosis [Unknown]
  - Urinary sediment present [Unknown]
  - Cough [Unknown]
  - Obesity [Unknown]
  - Skin warm [Unknown]
  - Bacteriuria [Unknown]
  - Dyspnoea [Unknown]
  - Hyperglycaemia [Unknown]
  - Nitrite urine present [Unknown]
  - Depressed mood [Unknown]
  - Leukocyturia [Unknown]
  - Productive cough [Unknown]
  - Hypertension [Not Recovered/Not Resolved]
  - White blood cell count increased [Unknown]
  - Bundle branch block left [Unknown]
  - Acanthoma [Recovered/Resolved]
  - Somnolence [Unknown]
  - Infection [Unknown]
  - General physical health deterioration [Unknown]
  - Asthenia [Unknown]
  - Feeling hot [Unknown]
  - Chronic obstructive pulmonary disease [Unknown]
  - Pneumonia [Unknown]
  - Tachycardia [Unknown]

NARRATIVE: CASE EVENT DATE: 20160707
